FAERS Safety Report 10617151 (Version 1)
Quarter: 2014Q4

REPORT INFORMATION
  Report Type: Spontaneous
  Country: US (occurrence: US)
  Receive Date: 20141201
  Receipt Date: 20141201
  Transmission Date: 20150529
  Serious: Yes (Other)
  Sender: FDA-Public Use
  Company Number: US-ASTELLAS-2014US018322

PATIENT

DRUGS (3)
  1. TACROLIMUS. [Suspect]
     Active Substance: TACROLIMUS
     Indication: PRODUCT USED FOR UNKNOWN INDICATION
     Dosage: UNK, UNKNOWN FREQ.
     Route: 065
  2. SOFOSBUVIR [Suspect]
     Active Substance: SOFOSBUVIR
     Indication: HEPATITIS C
     Route: 065
  3. SIMEPREVIR [Suspect]
     Active Substance: SIMEPREVIR
     Indication: HEPATITIS C
     Route: 065

REACTIONS (12)
  - Hepatic enzyme increased [Unknown]
  - Pulmonary embolism [Unknown]
  - Off label use [Unknown]
  - Drug interaction [Unknown]
  - Oedema [Unknown]
  - Asthenia [Unknown]
  - Confusional state [Unknown]
  - Bacteraemia [Unknown]
  - Pneumonia [Unknown]
  - Rash [Unknown]
  - Clostridium difficile infection [Unknown]
  - Pyrexia [Unknown]
